FAERS Safety Report 17728481 (Version 2)
Quarter: 2020Q2

REPORT INFORMATION
  Report Type: Spontaneous
  Country: IN (occurrence: IN)
  Receive Date: 20200430
  Receipt Date: 20200511
  Transmission Date: 20200714
  Serious: Yes (Other)
  Sender: FDA-Public Use
  Company Number: IN-PFIZER INC-2018345163

PATIENT
  Age: 43 Year
  Sex: Male

DRUGS (1)
  1. CRIZALK [Suspect]
     Active Substance: CRIZOTINIB
     Indication: LUNG NEOPLASM MALIGNANT
     Dosage: 250 MG, 2X/DAY
     Route: 048
     Dates: start: 20180425

REACTIONS (5)
  - General physical health deterioration [Unknown]
  - Malaise [Unknown]
  - Chest pain [Unknown]
  - Cancer pain [Unknown]
  - Pulmonary pain [Unknown]
